FAERS Safety Report 14309908 (Version 1)
Quarter: 2017Q4

REPORT INFORMATION
  Report Type: Spontaneous
  Country: CO (occurrence: CO)
  Receive Date: 20171220
  Receipt Date: 20171220
  Transmission Date: 20180321
  Serious: Yes (Other)
  Sender: FDA-Public Use
  Company Number: CO-FRESENIUS KABI-FK201711070

PATIENT
  Sex: Male
  Weight: 71 kg

DRUGS (1)
  1. HEPARIN SODIUM INJECTION, USP [Suspect]
     Active Substance: HEPARIN SODIUM
     Indication: HAEMODIALYSIS

REACTIONS (2)
  - Discomfort [Recovered/Resolved]
  - Chills [Recovered/Resolved]
